FAERS Safety Report 19666544 (Version 2)
Quarter: 2021Q3

REPORT INFORMATION
  Report Type: Report from Study
  Country: None (occurrence: US)
  Receive Date: 20210806
  Receipt Date: 20210810
  Transmission Date: 20211014
  Serious: Yes (Death)
  Sender: FDA-Public Use
  Company Number: US-ABBVIE-21K-163-4027818-00

PATIENT
  Age: 85 Year
  Sex: Male

DRUGS (2)
  1. DUOPA [Suspect]
     Active Substance: CARBIDOPA\LEVODOPA
  2. DUOPA [Suspect]
     Active Substance: CARBIDOPA\LEVODOPA
     Indication: PARKINSON^S DISEASE
     Dosage: MORNING DOSE 17ML, CONTINUOUS DOSE 7.9 ML, EXTRA DOSE 2 ML.?4.63 MG/ML 20 MG/ML
     Route: 050
     Dates: start: 202011, end: 202103

REACTIONS (3)
  - Loss of consciousness [Fatal]
  - Death [Fatal]
  - Off label use [Unknown]

NARRATIVE: CASE EVENT DATE: 20210711
